FAERS Safety Report 8854415 (Version 5)
Quarter: 2014Q4

REPORT INFORMATION
  Report Type: Spontaneous
  Country: US (occurrence: US)
  Receive Date: 20121023
  Receipt Date: 20141231
  Transmission Date: 20150529
  Serious: Yes (Hospitalization, Disabling, Other)
  Sender: FDA-Public Use
  Company Number: US-ASTRAZENECA-2012SE77893

PATIENT
  Age: 52 Year
  Sex: Male

DRUGS (3)
  1. RHINOCORT AQUA [Suspect]
     Active Substance: BUDESONIDE
     Route: 045
  2. RHINOCORT AQUA [Suspect]
     Active Substance: BUDESONIDE
     Route: 045
  3. RHINOCORT AQUA [Suspect]
     Active Substance: BUDESONIDE
     Dosage: 32 MCG, 2 SPRAYS IN EACH NOSTRIL 3 TIMES PER DAY
     Route: 045

REACTIONS (8)
  - Epistaxis [Unknown]
  - Musculoskeletal disorder [Unknown]
  - Pain [Unknown]
  - Orthopnoea [Unknown]
  - Intentional product misuse [Unknown]
  - Dyspnoea [Unknown]
  - Drug dose omission [Unknown]
  - Stress [Unknown]
